FAERS Safety Report 25391705 (Version 1)
Quarter: 2025Q2

REPORT INFORMATION
  Report Type: Spontaneous
  Country: US (occurrence: US)
  Receive Date: 20250603
  Receipt Date: 20250603
  Transmission Date: 20250716
  Serious: No
  Sender: Kenvue
  Company Number: US-KENVUE-20250508027

PATIENT
  Sex: Female

DRUGS (1)
  1. ZYRTEC [Suspect]
     Active Substance: CETIRIZINE HYDROCHLORIDE
     Indication: Seasonal allergy
     Dosage: 1 DOSAGE FORM, TWICE A DAY
     Route: 065
     Dates: start: 202505

REACTIONS (2)
  - Inappropriate schedule of product administration [Unknown]
  - Epistaxis [Unknown]

NARRATIVE: CASE EVENT DATE: 20250501
